FAERS Safety Report 9270062 (Version 1)
Quarter: 2013Q2

REPORT INFORMATION
  Report Type: Report from Study
  Country: US (occurrence: US)
  Receive Date: 20130503
  Receipt Date: 20130503
  Transmission Date: 20140414
  Serious: Yes (Hospitalization, Other)
  Sender: FDA-Public Use
  Company Number: US-ABBOTT-13P-163-1082310-00

PATIENT
  Age: 66 Year
  Sex: Female
  Weight: 90.8 kg

DRUGS (5)
  1. HUMIRA [Suspect]
     Indication: RHEUMATOID ARTHRITIS
     Route: 058
     Dates: start: 2007, end: 201007
  2. HUMIRA [Suspect]
     Route: 058
     Dates: start: 201010, end: 201210
  3. HUMIRA [Suspect]
     Dosage: ONE DOSE
  4. METHOTREXATE [Concomitant]
     Indication: RHEUMATOID ARTHRITIS
     Route: 048
  5. CELEBREX [Concomitant]
     Indication: RHEUMATOID ARTHRITIS

REACTIONS (23)
  - Lymphadenopathy [Recovered/Resolved]
  - Neck mass [Recovered/Resolved]
  - Lymphadenopathy [Recovered/Resolved]
  - Dizziness [Recovering/Resolving]
  - Cerebellar ataxia [Not Recovered/Not Resolved]
  - Ill-defined disorder [Unknown]
  - Benign salivary gland neoplasm [Unknown]
  - Intraductal proliferative breast lesion [Recovered/Resolved]
  - Dizziness [Recovering/Resolving]
  - Epstein-Barr virus infection [Recovered/Resolved]
  - Sinusitis [Recovered/Resolved]
  - Labyrinthitis [Unknown]
  - Mastoiditis [Unknown]
  - Dysarthria [Recovered/Resolved]
  - Vision blurred [Recovering/Resolving]
  - Fall [Recovered/Resolved]
  - Rib fracture [Recovering/Resolving]
  - Dizziness [Not Recovered/Not Resolved]
  - Balance disorder [Recovering/Resolving]
  - Confusional state [Recovered/Resolved]
  - Tremor [Recovering/Resolving]
  - Coordination abnormal [Recovering/Resolving]
  - Muscle spasms [Recovering/Resolving]
